FAERS Safety Report 10351719 (Version 2)
Quarter: 2014Q3

REPORT INFORMATION
  Report Type: Spontaneous
  Country: ES (occurrence: ES)
  Receive Date: 20140730
  Receipt Date: 20140730
  Transmission Date: 20150326
  Serious: Yes (Life-Threatening, Hospitalization, Disabling, Other)
  Sender: FDA-Public Use
  Company Number: ES-CUBIST PHARMACEUTICAL, INC.-2014CBST001069

PATIENT

DRUGS (3)
  1. INSULIN                            /00646001/ [Concomitant]
     Active Substance: INSULIN NOS
     Indication: DIABETES MELLITUS
  2. CUBICIN [Suspect]
     Active Substance: DAPTOMYCIN
     Indication: INFECTION
     Dosage: 8.5 MG/KG, QD
     Route: 042
     Dates: start: 20140630, end: 20140703
  3. ADO [Concomitant]
     Indication: DIABETES MELLITUS

REACTIONS (5)
  - Myopathy [Not Recovered/Not Resolved]
  - Respiratory muscle weakness [Unknown]
  - Sepsis [Unknown]
  - Blood creatine phosphokinase increased [Recovered/Resolved]
  - Renal failure [Unknown]
